FAERS Safety Report 10249538 (Version 1)
Quarter: 2014Q2

REPORT INFORMATION
  Report Type: Spontaneous
  Country: US (occurrence: US)
  Receive Date: 20140620
  Receipt Date: 20140620
  Transmission Date: 20141212
  Serious: No
  Sender: FDA-Public Use
  Company Number: US-PFIZER INC-2014169537

PATIENT
  Sex: Male

DRUGS (2)
  1. GABAPENTIN [Suspect]
     Dosage: 300 MG, 3X/DAY
     Dates: start: 201405
  2. SUBOXONE [Concomitant]
     Dosage: UNK

REACTIONS (1)
  - Headache [Unknown]
